FAERS Safety Report 8325666-5 (Version None)
Quarter: 2012Q2

REPORT INFORMATION
  Report Type: 
  Country: None (occurrence: None)
  Receive Date: 20120501
  Receipt Date: 20120501
  Transmission Date: 20120825
  Serious: No
  Sender: FDA-Public Use
  Company Number: None

PATIENT
  Age: 39 Year
  Sex: Male
  Weight: 149.68 kg

DRUGS (1)
  1. ZICAM [Suspect]

REACTIONS (1)
  - ANOSMIA [None]
